FAERS Safety Report 8849501 (Version 1)
Quarter: 2012Q4

REPORT INFORMATION
  Report Type: 
  Country: US (occurrence: US)
  Receive Date: 20121019
  Receipt Date: 20121019
  Transmission Date: 20130627
  Serious: Yes (Other)
  Sender: FDA-Public Use
  Company Number: PHHY2012US090336

PATIENT
  Age: 34 Year
  Sex: Female

DRUGS (5)
  1. FENTANYL [Suspect]
  2. OXYCODONE HYDROCHLORIDE [Suspect]
     Dosage: 90 DF, UNK
  3. LORAZEPAM [Suspect]
     Dosage: 120 DF
  4. ZOLPIDEM [Suspect]
     Dosage: 10 mg
  5. NALOXONE [Concomitant]
     Dosage: 2 DF

REACTIONS (4)
  - Stress cardiomyopathy [Recovered/Resolved]
  - Overdose [Unknown]
  - Ventricular hypokinesia [Unknown]
  - Unresponsive to stimuli [Unknown]
